FAERS Safety Report 4851876-5 (Version None)
Quarter: 2005Q4

REPORT INFORMATION
  Report Type: 
  Country: None (occurrence: None)
  Receive Date: 20051213
  Receipt Date: 20051202
  Transmission Date: 20060501
  Serious: Yes (Other)
  Sender: FDA-Public Use
  Company Number: US-JNJFOC-20051201249

PATIENT
  Sex: Male
  Weight: 79.38 kg

DRUGS (3)
  1. REMICADE [Suspect]
     Indication: CROHN'S DISEASE
     Route: 042
  2. 6-MP [Concomitant]
  3. CIPROFLOXACIN HCL [Concomitant]

REACTIONS (2)
  - HODGKIN'S DISEASE [None]
  - TONSILLECTOMY [None]
